FAERS Safety Report 5043811-4 (Version None)
Quarter: 2006Q3

REPORT INFORMATION
  Report Type: 
  Country: None (occurrence: None)
  Receive Date: 20060706
  Receipt Date: 20060626
  Transmission Date: 20061208
  Serious: Yes (Life-Threatening)
  Sender: FDA-Public Use
  Company Number: JP-JNJFOC-20060506233

PATIENT
  Sex: Male

DRUGS (16)
  1. DUROTEP [Suspect]
     Route: 062
  2. DUROTEP [Suspect]
     Route: 062
  3. DUROTEP [Suspect]
     Route: 062
  4. DUROTEP [Suspect]
     Route: 062
  5. DUROTEP [Suspect]
     Route: 062
  6. DUROTEP [Suspect]
     Route: 062
  7. DUROTEP [Suspect]
     Route: 062
  8. DUROTEP [Suspect]
     Indication: METASTASES TO BONE
     Route: 062
  9. DUROTEP [Suspect]
     Indication: PROSTATE CANCER
     Route: 062
  10. MORPHINE [Concomitant]
     Route: 048
  11. BICALUTAMIDE [Concomitant]
     Route: 048
  12. ETODOLAC [Concomitant]
     Route: 048
  13. PROCHLORPERAZINE MALEATE [Concomitant]
     Route: 048
  14. FAMOTIDINE [Concomitant]
     Route: 048
  15. ZOPICLONE [Concomitant]
     Route: 048
  16. SODIUM BICARBONATE - ANHYDROUS MONOBASIC SODIUM PHOSPHATE [Concomitant]
     Route: 065

REACTIONS (1)
  - LARGE INTESTINE PERFORATION [None]
